FAERS Safety Report 6182355-3 (Version None)
Quarter: 2009Q2

REPORT INFORMATION
  Report Type: 
  Country: None (occurrence: None)
  Receive Date: 20090507
  Receipt Date: 20090506
  Transmission Date: 20091009
  Serious: Yes (Hospitalization)
  Sender: FDA-Public Use
  Company Number: PHHO2005US20281

PATIENT
  Sex: Male
  Weight: 134 kg

DRUGS (21)
  1. CIBADREX T29368+ [Suspect]
     Indication: HYPERTENSION
     Dosage: LEVEL 1
     Route: 048
     Dates: start: 20040615, end: 20040706
  2. CIBADREX T29368+ [Suspect]
     Dosage: LEVEL 2
     Route: 048
     Dates: start: 20040707, end: 20040712
  3. CIBADREX T29368+ [Suspect]
     Dosage: LEVEL 3
     Route: 048
     Dates: start: 20040713
  4. GLUCOPHAGE [Suspect]
  5. SPIRONOLACTONE [Suspect]
     Dosage: 25 MG, 1/2 TAB, QD
  6. MINOXIDIL [Suspect]
     Indication: ALOPECIA
     Dosage: UNK, UNK
     Route: 048
  7. TERAZOSIN HCL [Suspect]
     Indication: HYPERTENSION
     Dosage: UNK, UNK
     Route: 048
  8. IMDUR [Concomitant]
     Indication: ANGINA PECTORIS
     Dosage: 40 MG, QD
     Route: 048
  9. AMIODARONE [Concomitant]
     Indication: ATRIAL FIBRILLATION
     Dosage: 200 MG, 1/2 A TABLET, QD
     Route: 048
  10. METOPROLOL [Concomitant]
     Indication: HYPERTENSION
     Dosage: UNK, UNK
     Route: 048
  11. SYNTHROID [Concomitant]
     Indication: HYPOTHYROIDISM
     Dosage: UNK, QD
     Route: 048
  12. LASIX [Concomitant]
     Indication: CARDIAC FAILURE CONGESTIVE
     Dosage: UNK, UNK
     Route: 048
     Dates: start: 20051010
  13. POTASSIUM CHLORIDE [Concomitant]
     Dosage: UNK, UNK
     Route: 048
     Dates: start: 20051010
  14. HUMALOG [Concomitant]
     Indication: DIABETES MELLITUS
     Dosage: 45 IU, TID
     Route: 030
  15. LANTUS [Concomitant]
     Indication: DIABETES MELLITUS
     Dosage: 45 IU, QHS
     Route: 030
  16. NITROGLYCERIN [Concomitant]
     Indication: ANGINA PECTORIS
     Dosage: 0.4 MG, PRN
     Route: 060
  17. ARTIFICIAL TEARS [Concomitant]
     Indication: EYE DISORDER
     Dosage: UNK, PRN
  18. LIPITOR [Concomitant]
     Indication: HYPERLIPIDAEMIA
     Dosage: UNK, UNK
     Route: 048
  19. DIGOXIN [Concomitant]
     Indication: CARDIAC FAILURE CONGESTIVE
     Dosage: UNK, UNK
     Route: 048
  20. PLAVIX [Concomitant]
     Dosage: UNK, UNK
  21. WARFARIN [Concomitant]
     Dates: start: 20051101

REACTIONS (15)
  - ANAEMIA [None]
  - BLOOD CREATININE INCREASED [None]
  - BLOOD UREA INCREASED [None]
  - CHEST DISCOMFORT [None]
  - CHILLS [None]
  - DEHYDRATION [None]
  - ELECTROCARDIOGRAM ABNORMAL [None]
  - HAEMODYNAMIC INSTABILITY [None]
  - HYPOTENSION [None]
  - INFLUENZA LIKE ILLNESS [None]
  - LEUKOCYTOSIS [None]
  - PNEUMONIA [None]
  - PYREXIA [None]
  - RENAL FAILURE ACUTE [None]
  - SEPSIS [None]
